FAERS Safety Report 6313140-7 (Version None)
Quarter: 2009Q3

REPORT INFORMATION
  Report Type: 
  Country: None (occurrence: None)
  Receive Date: 20090818
  Receipt Date: 20090811
  Transmission Date: 20100115
  Serious: Yes (Other)
  Sender: FDA-Public Use
  Company Number: US-AVENTIS-200917190US

PATIENT
  Sex: Male

DRUGS (7)
  1. LOVENOX [Suspect]
     Indication: THROMBOSIS PROPHYLAXIS
     Dates: start: 20090715, end: 20090101
  2. LOVENOX [Suspect]
     Dates: start: 20090805, end: 20090809
  3. LOVENOX [Suspect]
     Dates: start: 20090811
  4. DIGOXIN [Concomitant]
     Dosage: DOSE: UNK
  5. COUMADIN [Concomitant]
     Dosage: DOSE: UNK
     Dates: end: 20090707
  6. DIOVANE [Concomitant]
     Indication: BLOOD PRESSURE
     Dosage: DOSE: UNK
  7. UNKNOWN DRUG [Concomitant]
     Dosage: DOSE: UNK

REACTIONS (6)
  - AKINESIA [None]
  - APHASIA [None]
  - GASTROINTESTINAL HAEMORRHAGE [None]
  - MALAISE [None]
  - THROMBOTIC STROKE [None]
  - TRANSIENT ISCHAEMIC ATTACK [None]
